FAERS Safety Report 5341645-4 (Version None)
Quarter: 2007Q2

REPORT INFORMATION
  Report Type: 
  Country: None (occurrence: None)
  Receive Date: 20070530
  Receipt Date: 20070515
  Transmission Date: 20071010
  Serious: Yes (Hospitalization)
  Sender: FDA-Public Use
  Company Number: GP-07-05-0005

PATIENT
  Age: 67 Year
  Sex: Female

DRUGS (11)
  1. GABAPENTIN [Suspect]
     Indication: ANALGESIC EFFECT
     Dosage: 4800-7200 MG/DAY
     Dates: end: 20050401
  2. GABAPENTIN [Suspect]
     Indication: POLYNEUROPATHY
     Dosage: 1600-2400 MG/DAY
     Dates: start: 20050716
  3. NAPROXEN [Concomitant]
  4. AMITRIPTYLINE HCL [Concomitant]
  5. DEXTROPROPOXYPHENE/ACETAMINOPHEN [Concomitant]
  6. OXACARBAZEPINE [Concomitant]
  7. ALIMEMAZINE [Concomitant]
  8. AMITRIPTYLINE HCL [Concomitant]
  9. ACEPROMETAZINE/MEPROBAMATE [Concomitant]
  10. NICOTINE CHEWING GUM [Concomitant]
  11. DIAZEPAM [Concomitant]

REACTIONS (7)
  - AGITATION [None]
  - DRUG ABUSER [None]
  - DRUG WITHDRAWAL SYNDROME [None]
  - EXOPHTHALMOS [None]
  - HYPERHIDROSIS [None]
  - PALLOR [None]
  - TREMOR [None]
